FAERS Safety Report 22671320 (Version 2)
Quarter: 2023Q4

REPORT INFORMATION
  Report Type: Report from Study
  Country: CA (occurrence: CA)
  Receive Date: 20230705
  Receipt Date: 20231004
  Transmission Date: 20240110
  Serious: Yes (Other)
  Sender: FDA-Public Use
  Company Number: CA-JNJFOC-20230635186

PATIENT
  Age: 54 Year
  Sex: Female
  Weight: 90 kg

DRUGS (1)
  1. SIMPONI [Suspect]
     Active Substance: GOLIMUMAB
     Indication: Ankylosing spondylitis
     Route: 041
     Dates: start: 20210212

REACTIONS (5)
  - Ankylosing spondylitis [Unknown]
  - Product dose omission issue [Unknown]
  - Bronchitis [Unknown]
  - Weight decreased [Unknown]
  - Off label use [Unknown]
